FAERS Safety Report 15977226 (Version 2)
Quarter: 2019Q1

REPORT INFORMATION
  Report Type: Spontaneous
  Country: US (occurrence: US)
  Receive Date: 20190218
  Receipt Date: 20190226
  Transmission Date: 20190418
  Serious: Yes (Life-Threatening, Hospitalization)
  Sender: FDA-Public Use
  Company Number: US-PFIZER INC-2019064928

PATIENT
  Age: 55 Year
  Sex: Female

DRUGS (3)
  1. FILGRASTIM [Concomitant]
     Active Substance: FILGRASTIM
     Dosage: UNK
  2. CARBOPLATIN. [Concomitant]
     Active Substance: CARBOPLATIN
     Indication: CERVIX CARCINOMA
     Dosage: UNK UNK, CYCLIC
  3. PACLITAXEL. [Suspect]
     Active Substance: PACLITAXEL
     Indication: CERVIX CARCINOMA
     Dosage: 135 MG/M2, CYCLIC

REACTIONS (2)
  - Oral candidiasis [Unknown]
  - Neutropenia [Unknown]
